FAERS Safety Report 23131383 (Version 2)
Quarter: 2023Q4

REPORT INFORMATION
  Report Type: Spontaneous
  Country: SA (occurrence: SA)
  Receive Date: 20231031
  Receipt Date: 20231113
  Transmission Date: 20240110
  Serious: Yes (Other)
  Sender: FDA-Public Use
  Company Number: SA-TEVA-2023-SA-2940891

PATIENT
  Age: 13 Year
  Sex: Male

DRUGS (1)
  1. TESTOSTERONE [Suspect]
     Active Substance: TESTOSTERONE
     Indication: CHARGE syndrome
     Dosage: DOSE: 250 MG/ML
     Route: 065

REACTIONS (1)
  - Keratosis pilaris [Recovering/Resolving]
